FAERS Safety Report 9368858 (Version 2)
Quarter: 2013Q3

REPORT INFORMATION
  Report Type: Spontaneous
  Country: FR (occurrence: FR)
  Receive Date: 20130626
  Receipt Date: 20130702
  Transmission Date: 20140515
  Serious: Yes (Other)
  Sender: FDA-Public Use
  Company Number: FR-ROCHE-1239976

PATIENT
  Age: 55 Year
  Sex: Female

DRUGS (3)
  1. CELLCEPT [Suspect]
     Indication: AUTOIMMUNE HEPATITIS
     Route: 065
  2. CELLCEPT [Suspect]
     Indication: OFF LABEL USE
  3. COLCHIN [Concomitant]
     Indication: FAMILIAL MEDITERRANEAN FEVER

REACTIONS (1)
  - Phaeochromocytoma [Not Recovered/Not Resolved]
